FAERS Safety Report 16399728 (Version 3)
Quarter: 2019Q3

REPORT INFORMATION
  Report Type: Spontaneous
  Country: US (occurrence: US)
  Receive Date: 20190606
  Receipt Date: 20190919
  Transmission Date: 20191004
  Serious: No
  Sender: FDA-Public Use
  Company Number: US-SA-2019SA151107

PATIENT
  Age: 70 Year
  Sex: Male

DRUGS (1)
  1. PRALUENT [Suspect]
     Active Substance: ALIROCUMAB
     Indication: HYPERLIPIDAEMIA
     Dosage: 75 MG, QOW
     Route: 058
     Dates: start: 20181227

REACTIONS (6)
  - Nasopharyngitis [Not Recovered/Not Resolved]
  - Dysphonia [Unknown]
  - Fatigue [Unknown]
  - Cough [Unknown]
  - Aphonia [Unknown]
  - Dyspnoea [Unknown]
